FAERS Safety Report 9198096 (Version 3)
Quarter: 2014Q2

REPORT INFORMATION
  Report Type: Spontaneous
  Country: US (occurrence: US)
  Receive Date: 20130329
  Receipt Date: 20140520
  Transmission Date: 20141212
  Serious: Yes (Death)
  Sender: FDA-Public Use
  Company Number: US-ELI_LILLY_AND_COMPANY-US201303009412

PATIENT
  Age: 70 Year
  Sex: Female

DRUGS (3)
  1. PRASUGREL HYDROCHLORIDE [Suspect]
     Dosage: 60 MG, SINGLE
  2. PRASUGREL HYDROCHLORIDE [Suspect]
     Dosage: 10 MG, QD
  3. ASPIRIN [Concomitant]
     Dosage: 81 MG, UNK

REACTIONS (2)
  - Metastases to central nervous system [Fatal]
  - Lung neoplasm malignant [Fatal]
